FAERS Safety Report 9711740 (Version 1)
Quarter: 2013Q4

REPORT INFORMATION
  Report Type: Spontaneous
  Country: US (occurrence: US)
  Receive Date: 20131126
  Receipt Date: 20131126
  Transmission Date: 20140711
  Serious: No
  Sender: FDA-Public Use
  Company Number: US-BRISTOL-MYERS SQUIBB COMPANY-18798074

PATIENT
  Age: 45 Year
  Sex: Female

DRUGS (3)
  1. BYDUREON [Suspect]
     Dosage: NO OF INJ:3
  2. GLIMEPIRIDE [Concomitant]
     Route: 048
  3. METFORMIN [Concomitant]
     Route: 048

REACTIONS (2)
  - Injection site nodule [Not Recovered/Not Resolved]
  - Injection site pain [Not Recovered/Not Resolved]
